FAERS Safety Report 18397896 (Version 1)
Quarter: 2020Q4

REPORT INFORMATION
  Report Type: Spontaneous
  Country: ES (occurrence: ES)
  Receive Date: 20201019
  Receipt Date: 20201019
  Transmission Date: 20210114
  Serious: Yes (Life-Threatening, Hospitalization)
  Sender: FDA-Public Use
  Company Number: ES-MYLANLABS-2020M1087312

PATIENT
  Age: 57 Year
  Sex: Female

DRUGS (16)
  1. VALPROATE [Suspect]
     Active Substance: VALPROIC ACID
     Indication: GENERALISED TONIC-CLONIC SEIZURE
     Route: 042
  2. MIDAZOLAM. [Suspect]
     Active Substance: MIDAZOLAM
     Dosage: THEREFORE, PERAMPANEL, MIDAZOLAM AND PROPOFOL WERE GRADUALLY INCREASEDUNK
     Route: 065
  3. PREDNISONE. [Concomitant]
     Active Substance: PREDNISONE
     Indication: PROPHYLAXIS
     Route: 065
  4. OLANZAPINE. [Concomitant]
     Active Substance: OLANZAPINE
     Indication: GENERALISED TONIC-CLONIC SEIZURE
     Route: 065
  5. PERAMPANEL [Suspect]
     Active Substance: PERAMPANEL
     Dosage: UNKTHEREFORE, PERAMPANEL, MIDAZOLAM AND PROPOFOL WERE GRADUALLY INCREASED
     Route: 065
  6. MIDAZOLAM. [Suspect]
     Active Substance: MIDAZOLAM
     Indication: GENERALISED TONIC-CLONIC SEIZURE
     Dosage: UNK
     Route: 065
  7. LORAZEPAM. [Concomitant]
     Active Substance: LORAZEPAM
     Indication: GENERALISED TONIC-CLONIC SEIZURE
     Dosage: UNK
     Route: 065
  8. PROPOFOL. [Concomitant]
     Active Substance: PROPOFOL
     Indication: GENERALISED TONIC-CLONIC SEIZURE
     Dosage: UNK
     Route: 065
  9. VALPROATE [Suspect]
     Active Substance: VALPROIC ACID
     Indication: GENERALISED TONIC-CLONIC SEIZURE
     Dosage: 500 MILLIGRAM Q12H
     Route: 065
  10. PROPOFOL. [Concomitant]
     Active Substance: PROPOFOL
     Dosage: UNKTHEREFORE, PERAMPANEL, MIDAZOLAM AND PROPOFOL WERE GRADUALLY INCREASED
     Route: 065
  11. LORAZEPAM. [Concomitant]
     Active Substance: LORAZEPAM
     Dosage: UNKGRADUALLY DECREASED
     Route: 065
  12. LEVETIRACETAM. [Suspect]
     Active Substance: LEVETIRACETAM
     Indication: GENERALISED TONIC-CLONIC SEIZURE
     Dosage: 500 MILLIGRAM Q12H
     Route: 065
  13. LEVETIRACETAM. [Suspect]
     Active Substance: LEVETIRACETAM
     Dosage: DOSE OF LEVETIRACETAM REDUCEDUNK
     Route: 065
  14. PERAMPANEL [Suspect]
     Active Substance: PERAMPANEL
     Indication: GENERALISED TONIC-CLONIC SEIZURE
     Dosage: UNK
     Route: 065
  15. LEVETIRACETAM. [Suspect]
     Active Substance: LEVETIRACETAM
     Indication: GENERALISED TONIC-CLONIC SEIZURE
     Route: 042
  16. LACOSAMIDE. [Suspect]
     Active Substance: LACOSAMIDE
     Indication: GENERALISED TONIC-CLONIC SEIZURE
     Route: 065

REACTIONS (2)
  - Hyperammonaemic encephalopathy [Recovered/Resolved]
  - Status epilepticus [Recovered/Resolved]
